FAERS Safety Report 11139845 (Version 1)
Quarter: 2015Q2

REPORT INFORMATION
  Report Type: Spontaneous
  Country: CH (occurrence: CH)
  Receive Date: 20150527
  Receipt Date: 20150527
  Transmission Date: 20150821
  Serious: Yes (Hospitalization)
  Sender: FDA-Public Use
  Company Number: CH-BAYER-2015-258071

PATIENT
  Age: 67 Year
  Sex: Female

DRUGS (18)
  1. MOTILIUM [Concomitant]
     Active Substance: DOMPERIDONE
  2. SPIRIVA [Concomitant]
     Active Substance: TIOTROPIUM BROMIDE MONOHYDRATE
  3. PARAGOL [Concomitant]
  4. TARGIN [Concomitant]
     Active Substance: NALOXONE HYDROCHLORIDE\OXYCODONE HYDROCHLORIDE
  5. VI-DE 3 [Concomitant]
  6. FRAGMIN [Interacting]
     Active Substance: DALTEPARIN SODIUM
     Indication: ACUTE KIDNEY INJURY
     Dosage: 7500 IU, BID
     Route: 058
     Dates: end: 201410
  7. PANTOZOL [Concomitant]
     Active Substance: PANTOPRAZOLE SODIUM
  8. SYMBICORT [Concomitant]
     Active Substance: BUDESONIDE\FORMOTEROL FUMARATE DIHYDRATE
  9. HALDOL [Concomitant]
     Active Substance: HALOPERIDOL
  10. ACIDUM FOLICUM [Concomitant]
     Active Substance: FOLIC ACID
  11. ASPIRIN CARDIO [Suspect]
     Active Substance: ASPIRIN
     Indication: CORONARY ARTERY DISEASE
     Dosage: 100 MG, QD
     Route: 048
     Dates: end: 201410
  12. NACL [Concomitant]
     Active Substance: SODIUM CHLORIDE
  13. ATORVASTATIN [Concomitant]
     Active Substance: ATORVASTATIN
  14. VALVERDE [MELISSA OFFIC EXT,PASSIFL INCARN,PETASITES HYBRIDUS,VALE [Concomitant]
  15. RINGER LACTATE [CACL DIHYDR,KCL,NACL,NA+ LACT] [Concomitant]
  16. NEURODOL [Concomitant]
  17. SIRDALUD [Concomitant]
     Active Substance: TIZANIDINE
  18. PERENTEROL [Concomitant]
     Active Substance: SACCHAROMYCES CEREVISIAE

REACTIONS (3)
  - Acute kidney injury [Recovering/Resolving]
  - Wound haemorrhage [Recovering/Resolving]
  - Haemorrhagic anaemia [Recovering/Resolving]

NARRATIVE: CASE EVENT DATE: 201410
